FAERS Safety Report 11852407 (Version 1)
Quarter: 2015Q4

REPORT INFORMATION
  Report Type: Spontaneous
  Country: US (occurrence: US)
  Receive Date: 20151218
  Receipt Date: 20151218
  Transmission Date: 20160305
  Serious: No
  Sender: FDA-Public Use
  Company Number: US-PFIZER INC-2015452575

PATIENT
  Sex: Female
  Weight: 65 kg

DRUGS (3)
  1. CLONIDINE. [Concomitant]
     Active Substance: CLONIDINE
     Indication: HYPERTENSION
     Dosage: UNK
     Dates: start: 1993
  2. CALAN SR [Suspect]
     Active Substance: VERAPAMIL HYDROCHLORIDE
     Dosage: 240 MG, 1X/DAY
     Route: 048
     Dates: start: 199309
  3. CALAN SR [Suspect]
     Active Substance: VERAPAMIL HYDROCHLORIDE
     Indication: HYPERTENSION
     Dosage: 120G, 1/DAY
     Route: 048
     Dates: start: 1993

REACTIONS (12)
  - Palpitations [Recovered/Resolved]
  - Amenorrhoea [Unknown]
  - Upper respiratory tract irritation [Unknown]
  - Diarrhoea [Recovered/Resolved]
  - Hypertrichosis [Unknown]
  - Asthenia [Unknown]
  - Swelling [Unknown]
  - Fatigue [Unknown]
  - Somnolence [Unknown]
  - Muscle spasms [Recovered/Resolved]
  - Weight decreased [Unknown]
  - Pain [Recovered/Resolved]
